FAERS Safety Report 10151388 (Version 1)
Quarter: 2014Q2

REPORT INFORMATION
  Report Type: Spontaneous
  Country: US (occurrence: US)
  Receive Date: 20140504
  Receipt Date: 20140504
  Transmission Date: 20141212
  Serious: No
  Sender: FDA-Public Use
  Company Number: US-TEVA-479656USA

PATIENT
  Sex: Female

DRUGS (2)
  1. PLAN B ONE-STEP [Suspect]
     Indication: POST COITAL CONTRACEPTION
     Dosage: 1.5 MILLIGRAM DAILY;
     Route: 048
  2. BIRTH CONTROL PATCH [Concomitant]
     Indication: CONTRACEPTION
     Dates: start: 201404

REACTIONS (3)
  - Pollakiuria [Unknown]
  - Menstruation irregular [Not Recovered/Not Resolved]
  - Nausea [Unknown]
